FAERS Safety Report 5594172-3 (Version None)
Quarter: 2008Q1

REPORT INFORMATION
  Report Type: 
  Country: None (occurrence: None)
  Receive Date: 20080109
  Receipt Date: 20071226
  Transmission Date: 20080703
  Serious: Yes (Disabling)
  Sender: FDA-Public Use
  Company Number: CART-10502

PATIENT
  Age: 35 Year
  Sex: Male
  Weight: 101.4 kg

DRUGS (1)
  1. CARTICEL [Suspect]
     Indication: CHONDROPATHY
     Dosage: 1, ONCE, OTHER
     Dates: start: 20060807, end: 20060807

REACTIONS (10)
  - ARTHRALGIA [None]
  - CHONDROMALACIA [None]
  - FAILURE OF IMPLANT [None]
  - GRAFT COMPLICATION [None]
  - HOT FLUSH [None]
  - ILIOTIBIAL BAND SYNDROME [None]
  - OSTEONECROSIS [None]
  - SCAR [None]
  - SYNOVITIS [None]
  - TENDONITIS [None]
